FAERS Safety Report 11864396 (Version 1)
Quarter: 2015Q4

REPORT INFORMATION
  Report Type: Spontaneous
  Country: US (occurrence: US)
  Receive Date: 20151223
  Receipt Date: 20151223
  Transmission Date: 20160305
  Serious: No
  Sender: FDA-Public Use
  Company Number: US-ABBVIE-15P-163-1412783-00

PATIENT

DRUGS (1)
  1. LUPRON DEPOT [Suspect]
     Active Substance: LEUPROLIDE ACETATE
     Indication: PROSTATE CANCER
     Route: 065
     Dates: start: 2014, end: 2015

REACTIONS (2)
  - Injection site cellulitis [Recovered/Resolved]
  - Injection site cellulitis [Unknown]

NARRATIVE: CASE EVENT DATE: 2014
